FAERS Safety Report 22057969 (Version 1)
Quarter: 2023Q1

REPORT INFORMATION
  Report Type: Spontaneous
  Country: IN (occurrence: IN)
  Receive Date: 20230303
  Receipt Date: 20230303
  Transmission Date: 20230417
  Serious: Yes (Other)
  Sender: FDA-Public Use
  Company Number: IN-STRIDES ARCOLAB LIMITED-2023SP003229

PATIENT
  Weight: 1.198 kg

DRUGS (6)
  1. PROPRANOLOL [Suspect]
     Active Substance: PROPRANOLOL HYDROCHLORIDE
     Indication: Product used for unknown indication
     Dosage: UNK; PATIENT^S MOTHER RECEIVED 40 MILLIGRAM PER DAY
     Route: 064
  2. ASPIRIN [Suspect]
     Active Substance: ASPIRIN
     Indication: Product used for unknown indication
     Dosage: UNK; PATIENT^S MOTHER RECEIVED 75 MILLIGRAM PER DAY POLYCYTHAEMIA
     Route: 064
  3. FENTANYL [Suspect]
     Active Substance: FENTANYL
     Indication: Product used for unknown indication
     Dosage: UNK; PATIENT^S MOTHER RECEIVED 100 MICROGRAM FOR GENERAL ANAESTHESIA
     Route: 064
  4. KETAMINE [Suspect]
     Active Substance: KETAMINE
     Indication: Product used for unknown indication
     Dosage: UNK; PATIENT^S MOTHER RECEIVED 80 MILLIGRAM; TITRATED FOR GENERAL ANAESTHESIA
     Route: 064
  5. THIOPENTAL SODIUM [Suspect]
     Active Substance: THIOPENTAL SODIUM
     Indication: Product used for unknown indication
     Dosage: UNK; PATIENT^S MOTHER RECEIVED 50 MILLIGRAM FOR GENERAL ANAESTHESIA
     Route: 064
  6. SUCCINYLCHOLINE CHLORIDE [Suspect]
     Active Substance: SUCCINYLCHOLINE CHLORIDE
     Indication: Product used for unknown indication
     Dosage: UNK; PATIENT^S MOTHER RECEIVED 100 MILLIGRAM FOR (INDUCTION OF ANAESTHESIA
     Route: 064

REACTIONS (2)
  - Low birth weight baby [Unknown]
  - Foetal exposure during pregnancy [Unknown]
